FAERS Safety Report 24092084 (Version 2)
Quarter: 2024Q3

REPORT INFORMATION
  Report Type: Spontaneous
  Country: TR (occurrence: TR)
  Receive Date: 20240715
  Receipt Date: 20240806
  Transmission Date: 20241016
  Serious: Yes (Hospitalization)
  Sender: ROCHE
  Company Number: TR-Atnahs Limited-ATNAHS20240701941

PATIENT
  Age: 76 Year
  Sex: Female

DRUGS (1)
  1. BONVIVA [Suspect]
     Active Substance: IBANDRONATE SODIUM
     Indication: Lower limb fracture
     Route: 065
     Dates: start: 2021

REACTIONS (4)
  - Breast swelling [Recovered/Resolved]
  - Pneumonitis [Recovered/Resolved]
  - Intentional product misuse [Unknown]
  - Peripheral swelling [Recovered/Resolved]
